FAERS Safety Report 9124017 (Version 1)
Quarter: 2013Q1

REPORT INFORMATION
  Report Type: Spontaneous
  Country: US (occurrence: US)
  Receive Date: 20130116
  Receipt Date: 20130116
  Transmission Date: 20140127
  Serious: Yes (Hospitalization)
  Sender: FDA-Public Use
  Company Number: US-BAYER-2013-004532

PATIENT
  Age: 37 Year
  Sex: Female
  Weight: 79.9 kg

DRUGS (8)
  1. YAZ [Suspect]
  2. YASMIN [Suspect]
     Indication: MENSTRUAL CYCLE MANAGEMENT
  3. VICODIN ES [Concomitant]
     Dosage: 7.5-750 MG TAKE ONE BY MOUTH EVERY 6 HOURS AS NEEDED
     Route: 048
  4. TYLENOL [Concomitant]
     Indication: PAIN
     Dosage: UNK
  5. VICODIN [Concomitant]
     Indication: PAIN
     Dosage: UNK ; PRN
  6. LEVAQUIN [Concomitant]
     Dosage: UNK UNK, QD
  7. HYDROCODONE W/APAP [Concomitant]
     Indication: PAIN
     Dosage: 5MG/500MG 1-2 EVERY 6 HOURS
     Route: 048
     Dates: start: 20080301
  8. IBUPROFEN [Concomitant]
     Dosage: UNK

REACTIONS (1)
  - Deep vein thrombosis [Recovered/Resolved]
